FAERS Safety Report 17813863 (Version 6)
Quarter: 2021Q3

REPORT INFORMATION
  Report Type: Report from Study
  Country: KR (occurrence: KR)
  Receive Date: 20200521
  Receipt Date: 20210825
  Transmission Date: 20211014
  Serious: Yes (Hospitalization, Other)
  Sender: FDA-Public Use
  Company Number: NVSC2020KR139159

PATIENT
  Age: 44 Year
  Sex: Male
  Weight: 52.8 kg

DRUGS (27)
  1. COSENTYX [Suspect]
     Active Substance: SECUKINUMAB
     Dosage: 150 MG, UNKNOWN
     Route: 058
     Dates: end: 20200728
  2. OPHERYL SR [Concomitant]
     Indication: SPINAL OSTEOARTHRITIS
     Dosage: UNK
     Route: 065
     Dates: start: 20180920, end: 20200405
  3. OPHERYL SR [Concomitant]
     Dosage: UNK
     Route: 065
     Dates: start: 20200518
  4. METHOTREXATE. [Concomitant]
     Active Substance: METHOTREXATE
     Indication: PSORIATIC ARTHROPATHY
     Dosage: UNK
     Route: 065
     Dates: start: 20180830, end: 20200405
  5. MAGMIL [Concomitant]
     Active Substance: MAGNESIUM HYDROXIDE
     Indication: GASTROOESOPHAGEAL REFLUX DISEASE
     Dosage: UNK
     Route: 065
     Dates: start: 20200713
  6. MOSAONE [Concomitant]
     Indication: GASTROOESOPHAGEAL REFLUX DISEASE
     Dosage: UNK
     Route: 065
     Dates: start: 20200518
  7. COSENTYX [Suspect]
     Active Substance: SECUKINUMAB
     Dosage: 150 MG, UNKNOWN
     Route: 058
     Dates: start: 20200208
  8. COSENTYX [Suspect]
     Active Substance: SECUKINUMAB
     Dosage: 150 MG, UNKNOWN
     Route: 058
     Dates: start: 20200615
  9. MELOBIC [Concomitant]
     Indication: PSORIATIC ARTHROPATHY
     Dosage: 1 DF, BID
     Route: 065
     Dates: start: 20181011, end: 20200416
  10. FOLIC ACID. [Concomitant]
     Active Substance: FOLIC ACID
     Indication: FOLATE DEFICIENCY
     Dosage: UNK
     Route: 065
     Dates: start: 20180830, end: 20200410
  11. NUCYNTA [Concomitant]
     Active Substance: TAPENTADOL HYDROCHLORIDE
     Indication: PSORIATIC ARTHROPATHY
     Dosage: UNK
     Route: 065
     Dates: start: 20200106, end: 20200405
  12. COSENTYX [Suspect]
     Active Substance: SECUKINUMAB
     Dosage: 150 MG, UNKNOWN
     Route: 058
     Dates: start: 20200201
  13. COSENTYX [Suspect]
     Active Substance: SECUKINUMAB
     Dosage: 150 MG, UNKNOWN
     Route: 058
     Dates: start: 20200314
  14. FOLIC ACID. [Concomitant]
     Active Substance: FOLIC ACID
     Dosage: UNK
     Route: 065
     Dates: start: 20200518
  15. PARIET [Concomitant]
     Active Substance: RABEPRAZOLE SODIUM
     Indication: GASTROOESOPHAGEAL REFLUX DISEASE
     Dosage: UNK
     Route: 065
     Dates: start: 20180830, end: 20200426
  16. RAMNOS [Concomitant]
     Indication: LACTOBACILLUS INFECTION
     Dosage: UNK
     Route: 065
     Dates: start: 20200518
  17. COSENTYX [Suspect]
     Active Substance: SECUKINUMAB
     Dosage: 150 MG, UNKNOWN
     Route: 058
     Dates: start: 20200215
  18. COSENTYX [Suspect]
     Active Substance: SECUKINUMAB
     Dosage: 150 MG, UNKNOWN
     Route: 058
     Dates: start: 20200417
  19. ANTIBIO [Concomitant]
     Indication: LACTOBACILLUS INFECTION
     Dosage: UNK
     Route: 065
     Dates: start: 20200417, end: 20200517
  20. ULTRACET [Concomitant]
     Active Substance: ACETAMINOPHEN\TRAMADOL HYDROCHLORIDE
     Indication: PSORIATIC ARTHROPATHY
     Dosage: UNK
     Route: 065
     Dates: start: 20200713
  21. URSA [Concomitant]
     Active Substance: URSODIOL
     Indication: HEPATIC FUNCTION ABNORMAL
     Dosage: UNK
     Route: 065
     Dates: start: 20200407, end: 20200428
  22. CELEB [Concomitant]
     Indication: PSORIATIC ARTHROPATHY
     Dosage: UNK
     Route: 065
     Dates: start: 20200417, end: 20200423
  23. STILNOX [Concomitant]
     Active Substance: ZOLPIDEM TARTRATE
     Indication: INSOMNIA
     Dosage: UNK
     Route: 065
     Dates: start: 20191202, end: 20200405
  24. MUCOSTA [Concomitant]
     Active Substance: REBAMIPIDE
     Indication: GASTROOESOPHAGEAL REFLUX DISEASE
     Dosage: UNK
     Route: 065
     Dates: start: 20200430
  25. POLYBUTINE [Concomitant]
     Indication: GASTROOESOPHAGEAL REFLUX DISEASE
     Dosage: UNK
     Route: 065
     Dates: start: 20200518, end: 20200712
  26. COSENTYX [Suspect]
     Active Substance: SECUKINUMAB
     Indication: PSORIATIC ARTHROPATHY
     Dosage: 150 MG, UNKNOWN
     Route: 058
     Dates: start: 20200118, end: 20200418
  27. COSENTYX [Suspect]
     Active Substance: SECUKINUMAB
     Dosage: 150 MG, UNKNOWN
     Route: 058
     Dates: start: 20200125

REACTIONS (14)
  - Pyrexia [Recovered/Resolved]
  - Myalgia [Recovered/Resolved]
  - Chills [Recovered/Resolved]
  - Tenderness [Recovered/Resolved]
  - Nausea [Recovered/Resolved]
  - Melaena [Recovered/Resolved]
  - Abdominal pain [Recovering/Resolving]
  - Chills [Recovered/Resolved]
  - Chromaturia [Recovered/Resolved]
  - Pyrexia [Recovered/Resolved]
  - Myalgia [Recovered/Resolved]
  - Nausea [Recovered/Resolved]
  - Haematochezia [Recovered/Resolved]
  - Ileal ulcer [Recovered/Resolved]

NARRATIVE: CASE EVENT DATE: 20200406
